FAERS Safety Report 8242143-0 (Version None)
Quarter: 2012Q1

REPORT INFORMATION
  Report Type: 
  Country: None (occurrence: None)
  Receive Date: 20120329
  Receipt Date: 20120315
  Transmission Date: 20120608
  Serious: Yes (Other)
  Sender: FDA-Public Use
  Company Number: IN-RANBAXY-2012RR-52826

PATIENT
  Age: 17 Year
  Sex: Male

DRUGS (2)
  1. AMITRIPTYLINE HCL [Concomitant]
     Indication: HEADACHE
     Dosage: 25 MG/DAY
     Route: 065
  2. FLUOXETINE [Suspect]
     Indication: PRODUCT USED FOR UNKNOWN INDICATION
     Dosage: 20 MG/DAY
     Route: 065

REACTIONS (2)
  - OFF LABEL USE [None]
  - HYPOMANIA [None]
